FAERS Safety Report 25041497 (Version 1)
Quarter: 2025Q1

REPORT INFORMATION
  Report Type: Report from Study
  Country: TW (occurrence: TW)
  Receive Date: 20250305
  Receipt Date: 20250305
  Transmission Date: 20250409
  Serious: Yes (Hospitalization)
  Sender: BAYER HEALTHCARE PHARMACEUTICALS INC.
  Company Number: TW-BAYER-2024A173461

PATIENT
  Age: 7 Decade
  Sex: Male

DRUGS (1)
  1. ADEMPAS [Suspect]
     Active Substance: RIOCIGUAT
     Indication: Pulmonary hypertension
     Dosage: 1 DF, TID
     Route: 048
     Dates: start: 20241029

REACTIONS (10)
  - Gastroenteritis [Recovering/Resolving]
  - Discomfort [Unknown]
  - Chest discomfort [None]
  - Nausea [None]
  - Vomiting [None]
  - Throat irritation [None]
  - Fatigue [None]
  - Listless [None]
  - Product prescribing issue [None]
  - Incorrect dose administered [None]

NARRATIVE: CASE EVENT DATE: 20240101
